FAERS Safety Report 19843508 (Version 7)
Quarter: 2022Q1

REPORT INFORMATION
  Report Type: Spontaneous
  Country: JP (occurrence: JP)
  Receive Date: 20210917
  Receipt Date: 20220216
  Transmission Date: 20220423
  Serious: Yes (Hospitalization, Other)
  Sender: FDA-Public Use
  Company Number: JP-BRISTOL-MYERS SQUIBB COMPANY-BMS-2021-033750

PATIENT
  Age: 72 Year
  Sex: Male
  Weight: 67.2 kg

DRUGS (15)
  1. YERVOY [Suspect]
     Active Substance: IPILIMUMAB
     Indication: Non-small cell lung cancer recurrent
     Dosage: 65 MILLIGRAM, Q6WK
     Route: 041
     Dates: start: 20210316, end: 20210316
  2. YERVOY [Suspect]
     Active Substance: IPILIMUMAB
     Dosage: 65 MILLIGRAM, Q6WK
     Route: 041
     Dates: start: 20210427, end: 20210427
  3. YERVOY [Suspect]
     Active Substance: IPILIMUMAB
     Dosage: 69 MILLIGRAM, Q6WK
     Route: 041
     Dates: start: 20210708, end: 20210708
  4. OPDIVO [Suspect]
     Active Substance: NIVOLUMAB
     Indication: Non-small cell lung cancer recurrent
     Dosage: 360 MILLIGRAM, Q3WK
     Route: 041
     Dates: start: 20210316, end: 20210316
  5. OPDIVO [Suspect]
     Active Substance: NIVOLUMAB
     Dosage: 360 MILLIGRAM, Q3WK
     Route: 041
     Dates: start: 20210406, end: 20210406
  6. OPDIVO [Suspect]
     Active Substance: NIVOLUMAB
     Dosage: 360 MILLIGRAM, Q3WK
     Route: 041
     Dates: start: 20210427, end: 20210427
  7. OPDIVO [Suspect]
     Active Substance: NIVOLUMAB
     Dosage: 360 MILLIGRAM, Q3WK
     Route: 041
     Dates: start: 20210610, end: 20210610
  8. OPDIVO [Suspect]
     Active Substance: NIVOLUMAB
     Dosage: 360 MILLIGRAM, Q3WK
     Route: 041
     Dates: start: 20210708, end: 20210708
  9. OPDIVO [Suspect]
     Active Substance: NIVOLUMAB
     Dosage: 360 MILLIGRAM, Q3WK
     Route: 041
     Dates: start: 20210729, end: 20210729
  10. CARBOPLATIN [Suspect]
     Active Substance: CARBOPLATIN
     Indication: Non-small cell lung cancer recurrent
     Dosage: 490 MILLIGRAM, Q3WK
     Route: 041
     Dates: start: 20210316, end: 20210316
  11. CARBOPLATIN [Suspect]
     Active Substance: CARBOPLATIN
     Dosage: 490 MILLIGRAM, Q3WK
     Route: 041
     Dates: start: 20210406, end: 20210406
  12. CARBOPLATIN [Suspect]
     Active Substance: CARBOPLATIN
     Dosage: 490 MILLIGRAM, Q3WK
     Route: 041
     Dates: start: 20210427, end: 20210427
  13. PEMETREXED DISODIUM [Suspect]
     Active Substance: PEMETREXED DISODIUM
     Indication: Non-small cell lung cancer recurrent
     Dosage: 890 MILLIGRAM, Q3WK
     Route: 041
     Dates: start: 20210316, end: 20210316
  14. PEMETREXED DISODIUM [Suspect]
     Active Substance: PEMETREXED DISODIUM
     Dosage: 890 MILLIGRAM, Q3WK
     Route: 065
     Dates: start: 20210406, end: 20210406
  15. PEMETREXED DISODIUM [Suspect]
     Active Substance: PEMETREXED DISODIUM
     Dosage: 890 MILLIGRAM, Q3WK
     Route: 041
     Dates: start: 20210427, end: 20210427

REACTIONS (14)
  - Hypothyroidism [Recovered/Resolved]
  - Hypopituitarism [Recovering/Resolving]
  - Adrenal insufficiency [Recovering/Resolving]
  - Secondary adrenocortical insufficiency [Not Recovered/Not Resolved]
  - Diarrhoea [Recovered/Resolved]
  - Syncope [Recovered/Resolved]
  - Dizziness [Unknown]
  - Cerebral atrophy [Unknown]
  - Cerebral ischaemia [Unknown]
  - Cerebral haemorrhage [Unknown]
  - Hypokalaemia [Recovered/Resolved]
  - Pituitary tumour benign [Unknown]
  - Pyrexia [Recovered/Resolved]
  - Sleep deficit [Unknown]

NARRATIVE: CASE EVENT DATE: 20210406
